FAERS Safety Report 10717796 (Version 1)
Quarter: 2015Q1

REPORT INFORMATION
  Report Type: Spontaneous
  Country: JP (occurrence: JP)
  Receive Date: 20150116
  Receipt Date: 20150116
  Transmission Date: 20150721
  Serious: Yes (Death)
  Sender: FDA-Public Use
  Company Number: JP-MALLINCKRODT-T201401132

PATIENT
  Age: 57 Year
  Sex: Male
  Weight: 49 kg

DRUGS (11)
  1. FUROSEMIDE. [Concomitant]
     Active Substance: FUROSEMIDE
     Indication: PANCREATIC CARCINOMA
     Dosage: 40 MG, UNK
     Route: 048
     Dates: start: 20130606, end: 20140115
  2. LANSOPRAZOLE. [Concomitant]
     Active Substance: LANSOPRAZOLE
     Indication: PRODUCT USED FOR UNKNOWN INDICATION
     Dosage: 15 MG, UNK
     Route: 048
     Dates: start: 20120724, end: 20140115
  3. MORPHINE HCL [Concomitant]
     Active Substance: MORPHINE HYDROCHLORIDE
     Indication: PRODUCT USED FOR UNKNOWN INDICATION
     Dosage: 20 MG, PRN
     Route: 048
     Dates: start: 20131206
  4. LYRICA [Concomitant]
     Active Substance: PREGABALIN
     Indication: PRODUCT USED FOR UNKNOWN INDICATION
     Dosage: 300 MG, UNK
     Route: 048
     Dates: start: 20130507, end: 20140115
  5. SANDOSTATIN [Concomitant]
     Active Substance: OCTREOTIDE ACETATE
     Indication: PANCREATIC CARCINOMA
     Dosage: 300 ?G, UNK
     Route: 051
     Dates: start: 20131204, end: 20131214
  6. MS CONTIN [Concomitant]
     Active Substance: MORPHINE SULFATE
     Dosage: UNK
  7. LIPACREON [Concomitant]
     Active Substance: PANCRELIPASE
     Indication: PRODUCT USED FOR UNKNOWN INDICATION
     Dosage: 300 MG, UNK
     Route: 048
     Dates: end: 20140112
  8. MAOTO [Concomitant]
     Active Substance: UNSPECIFIED INGREDIENT
     Dosage: 5 G, UNK
     Route: 048
     Dates: start: 20130915, end: 20131226
  9. MAOTO [Concomitant]
     Active Substance: UNSPECIFIED INGREDIENT
     Dosage: 7.5 G, UNK
     Route: 048
     Dates: start: 20131227, end: 20140112
  10. METHADONE [Suspect]
     Active Substance: METHADONE HYDROCHLORIDE
     Indication: CANCER PAIN
     Dosage: 5 MG (15 MG DAILY DOSE)
     Route: 048
     Dates: start: 20131207, end: 20140116
  11. LOXOPROFEN [Concomitant]
     Active Substance: LOXOPROFEN
     Indication: PRODUCT USED FOR UNKNOWN INDICATION
     Dosage: 180 MG, UNK
     Route: 048
     Dates: start: 20130411, end: 20140115

REACTIONS (2)
  - Somnolence [Recovering/Resolving]
  - Pancreatic carcinoma [Fatal]

NARRATIVE: CASE EVENT DATE: 20131207
